FAERS Safety Report 9299025 (Version 1)
Quarter: 2013Q2

REPORT INFORMATION
  Report Type: Spontaneous
  Country: US (occurrence: US)
  Receive Date: 20130520
  Receipt Date: 20130520
  Transmission Date: 20140414
  Serious: Yes (Other)
  Sender: FDA-Public Use
  Company Number: US-BRISTOL-MYERS SQUIBB COMPANY-18884536

PATIENT
  Age: 74 Year
  Sex: Male

DRUGS (3)
  1. ERBITUX [Suspect]
     Route: 042
     Dates: start: 20120810
  2. CARBOPLATIN [Suspect]
  3. PACLITAXEL [Suspect]

REACTIONS (1)
  - Meningitis aseptic [Unknown]
